FAERS Safety Report 8977684 (Version 1)
Quarter: 2012Q4

REPORT INFORMATION
  Report Type: 
  Country: US (occurrence: US)
  Receive Date: 20121220
  Receipt Date: 20121220
  Transmission Date: 20130627
  Serious: No
  Sender: FDA-Public Use
  Company Number: US-PFIZER INC-2012320702

PATIENT
  Age: 70 Year

DRUGS (4)
  1. SEPTRA [Suspect]
     Dosage: UNK
  2. BACTRIM [Suspect]
     Dosage: UNK
  3. ROCEPHIN [Suspect]
     Dosage: UNK
  4. B-12 [Suspect]
     Dosage: UNK

REACTIONS (2)
  - Urticaria [Unknown]
  - Drug hypersensitivity [Unknown]
